FAERS Safety Report 8126494-6 (Version None)
Quarter: 2012Q1

REPORT INFORMATION
  Report Type: 
  Country: None (occurrence: None)
  Receive Date: 20120209
  Receipt Date: 20120203
  Transmission Date: 20120608
  Serious: Yes (Other)
  Sender: FDA-Public Use
  Company Number: US-ASTRAZENECA-2010SE37946

PATIENT
  Age: 61 Year
  Sex: Male
  Weight: 123.4 kg

DRUGS (3)
  1. SEROQUEL [Suspect]
     Route: 048
  2. SEROQUEL [Suspect]
     Route: 048
  3. SEROQUEL [Suspect]
     Indication: BIPOLAR I DISORDER
     Route: 048

REACTIONS (14)
  - FEELING ABNORMAL [None]
  - BACK DISORDER [None]
  - WRONG TECHNIQUE IN DRUG USAGE PROCESS [None]
  - TRANSIENT ISCHAEMIC ATTACK [None]
  - MALAISE [None]
  - PERIORBITAL HAEMATOMA [None]
  - TONGUE BITING [None]
  - DIZZINESS [None]
  - LIP INJURY [None]
  - HEADACHE [None]
  - TONGUE INJURY [None]
  - DIARRHOEA [None]
  - SOMNOLENCE [None]
  - AMNESIA [None]
